FAERS Safety Report 5721707-X (Version None)
Quarter: 2008Q2

REPORT INFORMATION
  Report Type: 
  Country: None (occurrence: None)
  Receive Date: 20080429
  Receipt Date: 20070402
  Transmission Date: 20081010
  Serious: No
  Sender: FDA-Public Use
  Company Number: CN-ASTRAZENECA-2007UW06537

PATIENT
  Age: 67 Year
  Sex: Female
  Weight: 103 kg

DRUGS (9)
  1. NEXIUM [Suspect]
     Indication: GASTROOESOPHAGEAL REFLUX DISEASE
     Route: 048
     Dates: start: 20070301
  2. LANTUS [Concomitant]
  3. INSULIN [Concomitant]
  4. LEVOTHYROXINE SODIUM [Concomitant]
  5. LASIX [Concomitant]
  6. DOLOBID [Concomitant]
  7. LESCOL XL [Concomitant]
  8. ACEBUTOL [Concomitant]
  9. ASPIRIN [Concomitant]

REACTIONS (4)
  - ABDOMINAL PAIN UPPER [None]
  - CHEST DISCOMFORT [None]
  - DIARRHOEA [None]
  - HEADACHE [None]
